FAERS Safety Report 22049287 (Version 1)
Quarter: 2023Q1

REPORT INFORMATION
  Report Type: Spontaneous
  Country: US (occurrence: None)
  Receive Date: 20230228
  Receipt Date: 20230228
  Transmission Date: 20230418
  Serious: No
  Sender: FDA-Public Use
  Company Number: None

PATIENT
  Age: 65 Year
  Sex: Female
  Weight: 58.06 kg

DRUGS (22)
  1. IBRANCE [Suspect]
     Active Substance: PALBOCICLIB
     Indication: Breast cancer female
     Dosage: OTHER FREQUENCY : 21DON7D OFF;?
     Route: 048
     Dates: start: 202302
  2. ALLERGY RELIEF [Concomitant]
  3. ASPIRIN [Concomitant]
     Active Substance: ASPIRIN
  4. B COMPLEX [Concomitant]
  5. BENADRYL [Concomitant]
  6. CHLORPHENRIAMINE [Concomitant]
  7. CITALPRAM [Concomitant]
  8. FISH OIL [Concomitant]
  9. VITAMIN D3 [Concomitant]
  10. FEMARA [Concomitant]
  11. LETROZOLE [Concomitant]
  12. LEVOTHYROXINE [Concomitant]
  13. LOPERAMIDE [Concomitant]
  14. LORAZEPAM [Concomitant]
  15. METOCLOPRAMIDE [Concomitant]
  16. ONDANSETRON [Concomitant]
  17. PANTOPRAZOLE [Concomitant]
  18. PROPRANOLOL [Concomitant]
     Active Substance: PROPRANOLOL HYDROCHLORIDE
  19. SOLIFENACIN [Concomitant]
  20. TEMAZEPAM [Concomitant]
  21. VITAMIN D3 [Concomitant]
  22. XGEVA [Concomitant]

REACTIONS (3)
  - Pyrexia [None]
  - Hot flush [None]
  - Epistaxis [None]
